FAERS Safety Report 12795507 (Version 1)
Quarter: 2016Q3

REPORT INFORMATION
  Report Type: Spontaneous
  Country: FR (occurrence: FR)
  Receive Date: 20160929
  Receipt Date: 20160929
  Transmission Date: 20161109
  Serious: Yes (Hospitalization)
  Sender: FDA-Public Use
  Company Number: FR-CELGENEUS-FRA-2016093637

PATIENT
  Age: 73 Year
  Sex: Male
  Weight: 100 kg

DRUGS (4)
  1. IMNOVID [Suspect]
     Active Substance: POMALIDOMIDE
     Route: 048
  2. ASPIRIN. [Concomitant]
     Active Substance: ASPIRIN
     Indication: THROMBOSIS PROPHYLAXIS
     Route: 065
  3. DEXAMETHASONE. [Concomitant]
     Active Substance: DEXAMETHASONE
     Indication: PLASMA CELL MYELOMA
     Route: 065
  4. IMNOVID [Suspect]
     Active Substance: POMALIDOMIDE
     Indication: PLASMA CELL MYELOMA
     Route: 048
     Dates: start: 20140905, end: 20160624

REACTIONS (3)
  - Phlebitis [Recovered/Resolved with Sequelae]
  - Infection [Recovered/Resolved with Sequelae]
  - Erysipelas [Recovered/Resolved with Sequelae]

NARRATIVE: CASE EVENT DATE: 20160624
